FAERS Safety Report 10744514 (Version 2)
Quarter: 2015Q1

REPORT INFORMATION
  Report Type: Spontaneous
  Country: US (occurrence: US)
  Receive Date: 20150128
  Receipt Date: 20150203
  Transmission Date: 20150721
  Serious: Yes (Death, Hospitalization)
  Sender: FDA-Public Use
  Company Number: US-UNITED THERAPEUTICS-UNT-2015-000809

PATIENT
  Age: 57 Year
  Sex: Male
  Weight: 120.18 kg

DRUGS (1)
  1. REMODULIN [Suspect]
     Active Substance: TREPROSTINIL
     Indication: PULMONARY HYPERTENSION
     Dosage: 0.002 ?G/KG, CONTINUING
     Route: 058
     Dates: start: 20141229

REACTIONS (3)
  - Ammonia increased [Unknown]
  - Death [Fatal]
  - Mental impairment [Unknown]

NARRATIVE: CASE EVENT DATE: 20150123
